FAERS Safety Report 8152032-8 (Version None)
Quarter: 2012Q1

REPORT INFORMATION
  Report Type: 
  Country: None (occurrence: None)
  Receive Date: 20120215
  Receipt Date: 20120215
  Transmission Date: 20120608
  Serious: Yes (Hospitalization)
  Sender: FDA-Public Use
  Company Number: None

PATIENT
  Age: 30 Year
  Sex: Male
  Weight: 72.4 kg

DRUGS (1)
  1. LAMOTRIGINE [Suspect]
     Indication: CONVULSION
     Dosage: 75 MG BID PO
     Route: 048
     Dates: start: 20111114, end: 20111217

REACTIONS (5)
  - RASH MACULAR [None]
  - TACHYCARDIA [None]
  - PYREXIA [None]
  - URTICARIA [None]
  - RASH [None]
